FAERS Safety Report 4480058-4 (Version None)
Quarter: 2004Q3

REPORT INFORMATION
  Report Type: 
  Country: None (occurrence: None)
  Receive Date: 20040923
  Receipt Date: 20040607
  Transmission Date: 20050211
  Serious: No
  Sender: FDA-Public Use
  Company Number: USA040669478

PATIENT
  Age: 74 Year
  Sex: Female
  Weight: 58 kg

DRUGS (2)
  1. FORTEO [Suspect]
     Indication: OSTEOPOROSIS
     Dates: start: 20030801, end: 20031201
  2. MULTIVITAMIN [Concomitant]

REACTIONS (3)
  - DIFFICULTY IN WALKING [None]
  - DISORIENTATION [None]
  - DYSSTASIA [None]
